FAERS Safety Report 10080720 (Version 4)
Quarter: 2014Q2

REPORT INFORMATION
  Report Type: Report from Study
  Country: US (occurrence: US)
  Receive Date: 20140416
  Receipt Date: 20140520
  Transmission Date: 20141212
  Serious: Yes (Hospitalization, Other)
  Sender: FDA-Public Use
  Company Number: US-JNJFOC-20140405567

PATIENT
  Age: 81 Year
  Sex: Male
  Weight: 49.9 kg

DRUGS (21)
  1. STELARA [Suspect]
     Indication: PSORIASIS
     Route: 058
     Dates: start: 20131002, end: 20131105
  2. ENALAPRIL [Concomitant]
     Route: 048
  3. ISOSORBIDE ER [Concomitant]
     Route: 048
  4. LOVASTATIN [Concomitant]
     Dosage: AT BED TIME
     Route: 048
  5. TRIAMCINOLONE [Concomitant]
     Indication: PRURITUS
     Dosage: AS NECESSARY
     Route: 065
  6. VECTICAL [Concomitant]
     Dosage: AS NECESSARY
     Route: 061
  7. LIPITOR [Concomitant]
     Route: 065
  8. VASOTEC [Concomitant]
     Route: 065
  9. LOVENOX [Concomitant]
     Route: 058
  10. LASIX [Concomitant]
     Route: 042
  11. IMDUR [Concomitant]
     Route: 065
  12. ALLOPURINOL [Concomitant]
     Indication: GOUTY ARTHRITIS
     Route: 065
  13. AMLODIPINE [Concomitant]
     Route: 065
  14. COLACE [Concomitant]
     Route: 065
  15. LACTULOSE [Concomitant]
     Route: 065
  16. METOPROLOL [Concomitant]
     Route: 065
  17. MILK OF MAGNESIA [Concomitant]
     Route: 065
  18. ZOFRAN [Concomitant]
     Route: 065
  19. METAMUCIL [Concomitant]
     Route: 065
  20. TRAMADOL [Concomitant]
     Route: 065
  21. COLCHICINE [Concomitant]
     Indication: GOUTY ARTHRITIS
     Route: 065

REACTIONS (4)
  - Cardiac failure congestive [Not Recovered/Not Resolved]
  - Iron deficiency anaemia [Not Recovered/Not Resolved]
  - Acute prerenal failure [Recovered/Resolved]
  - Pneumonia [Recovered/Resolved]
